FAERS Safety Report 21374299 (Version 4)
Quarter: 2022Q4

REPORT INFORMATION
  Report Type: Report from Study
  Country: CH (occurrence: CH)
  Receive Date: 20220926
  Receipt Date: 20221019
  Transmission Date: 20230113
  Serious: Yes (Death, Life-Threatening, Other)
  Sender: FDA-Public Use
  Company Number: CH-ABBVIE-4129525

PATIENT
  Sex: Male

DRUGS (4)
  1. CARBIDOPA\LEVODOPA [Suspect]
     Active Substance: CARBIDOPA\LEVODOPA
     Indication: Parkinson^s disease
     Dosage: MD: 0 ML, CRD: 3.7 ML/H, CRN: 3.5 ML/H, ED: 1.6 ML
     Route: 050
     Dates: start: 20220302, end: 2022
  2. CARBIDOPA\LEVODOPA [Suspect]
     Active Substance: CARBIDOPA\LEVODOPA
     Route: 050
     Dates: start: 20190115
  3. CARBIDOPA\LEVODOPA [Suspect]
     Active Substance: CARBIDOPA\LEVODOPA
     Dosage: MD: 4 ML, CRD: 4.8 ML/H, CRN: 4.6 ML/H, ED: 2 ML
     Route: 050
     Dates: start: 20211209, end: 20220302
  4. CARBIDOPA\LEVODOPA [Suspect]
     Active Substance: CARBIDOPA\LEVODOPA
     Dosage: MD: 0 ML, CRD: 3.6 ML/H, CRN: 3.6 ML/H, ED: 1.8 ML
     Route: 050
     Dates: start: 20220924, end: 20221007

REACTIONS (11)
  - Skin cancer metastatic [Fatal]
  - Parkinson^s disease [Not Recovered/Not Resolved]
  - Cardiac arrest [Fatal]
  - Parkinson^s disease [Not Recovered/Not Resolved]
  - Stoma site hypergranulation [Not Recovered/Not Resolved]
  - Malaise [Not Recovered/Not Resolved]
  - General physical health deterioration [Fatal]
  - Device physical property issue [Unknown]
  - Pleural effusion [Fatal]
  - Multiple organ dysfunction syndrome [Fatal]
  - Thoracic cavity drainage [Unknown]

NARRATIVE: CASE EVENT DATE: 20220101
